FAERS Safety Report 11589990 (Version 4)
Quarter: 2017Q1

REPORT INFORMATION
  Report Type: Spontaneous
  Country: JP (occurrence: JP)
  Receive Date: 20151002
  Receipt Date: 20170324
  Transmission Date: 20170428
  Serious: Yes (Other)
  Sender: FDA-Public Use
  Company Number: JP-JNJFOC-20150924039

PATIENT

DRUGS (3)
  1. SOVRIAD [Suspect]
     Active Substance: SIMEPREVIR
     Indication: CHRONIC HEPATITIS C
     Route: 048
  2. PEGINTERFERON ALFA-2A [Suspect]
     Active Substance: PEGINTERFERON ALFA-2A
     Indication: CHRONIC HEPATITIS C
     Route: 058
  3. RIBAVIRIN. [Suspect]
     Active Substance: RIBAVIRIN
     Indication: CHRONIC HEPATITIS C
     Route: 048

REACTIONS (14)
  - Blood bilirubin increased [Unknown]
  - Decreased appetite [Unknown]
  - Pleural effusion [Unknown]
  - Blood creatinine increased [Unknown]
  - Retinal haemorrhage [Unknown]
  - Malaise [Unknown]
  - White blood cell count decreased [Unknown]
  - Alanine aminotransferase increased [Unknown]
  - Dyspnoea [Unknown]
  - Rash [Unknown]
  - Renal impairment [Unknown]
  - Haemoglobin decreased [Unknown]
  - Bradycardia [Unknown]
  - Platelet count decreased [Unknown]
